FAERS Safety Report 12191695 (Version 1)
Quarter: 2016Q1

REPORT INFORMATION
  Report Type: Spontaneous
  Country: FR (occurrence: FR)
  Receive Date: 20160318
  Receipt Date: 20160318
  Transmission Date: 20160526
  Serious: Yes (Hospitalization)
  Sender: FDA-Public Use
  Company Number: FR-SA-2016SA050334

PATIENT
  Age: 86 Year
  Sex: Male

DRUGS (15)
  1. LOVENOX [Suspect]
     Active Substance: ENOXAPARIN SODIUM
     Route: 058
     Dates: start: 20160123, end: 20160128
  2. MIRTAZAPINE. [Concomitant]
     Active Substance: MIRTAZAPINE
     Dosage: FORM STRENGTH: 15 MG
     Route: 065
  3. FUROSEMIDE. [Concomitant]
     Active Substance: FUROSEMIDE
     Dosage: FORM STRENGTH: 40 MG
     Route: 065
  4. PANTOPRAZOLE [Concomitant]
     Active Substance: PANTOPRAZOLE SODIUM
     Dosage: FORM STRENGTH: 20 MG
     Route: 065
  5. HEPARINE CHOAY [Suspect]
     Active Substance: HEPARIN SODIUM
     Dosage: FORM STRENGTH: 25000 IU
     Route: 042
     Dates: start: 20160118, end: 20160123
  6. LYRICA [Concomitant]
     Active Substance: PREGABALIN
     Dosage: FORM STRENGTH: 12 MCG
     Route: 065
  7. NICARDIPINE [Concomitant]
     Active Substance: NICARDIPINE
     Dosage: FORM STRENGTH: 50 MG
     Route: 065
  8. KARDEGIC [Concomitant]
     Active Substance: ASPIRIN LYSINE
     Dosage: FORM STRENGTH: 160 MG
     Route: 065
  9. ZOPICLONE [Concomitant]
     Active Substance: ZOPICLONE
     Dosage: FORM STRENGTH: 7.5 MG
     Route: 065
  10. PARACETAMOL [Concomitant]
     Active Substance: ACETAMINOPHEN
     Route: 065
  11. KARDEGIC [Concomitant]
     Active Substance: ASPIRIN LYSINE
     Dosage: FORM STRENGTH: 75 MG
     Route: 065
     Dates: start: 20160126
  12. PREVISCAN [Concomitant]
     Active Substance: FLUINDIONE
     Dosage: FORM STRENGTH: 20 MG
     Route: 065
     Dates: end: 20160118
  13. LOVENOX [Suspect]
     Active Substance: ENOXAPARIN SODIUM
     Dosage: FORM STRENGTH: 4000 IU
     Route: 051
     Dates: start: 20160202, end: 20160209
  14. FORMOTEROL [Concomitant]
     Active Substance: FORMOTEROL
     Dosage: FORM STRENGTH: 12 MCG
     Route: 065
  15. IVABRADINE [Concomitant]
     Active Substance: IVABRADINE
     Dosage: FORM STRENGTH:5 MG
     Route: 065

REACTIONS (2)
  - Haematoma [Recovered/Resolved]
  - Rebound effect [Recovering/Resolving]

NARRATIVE: CASE EVENT DATE: 20160128
